FAERS Safety Report 8103423-2 (Version None)
Quarter: 2012Q1

REPORT INFORMATION
  Report Type: 
  Country: None (occurrence: None)
  Receive Date: 20120201
  Receipt Date: 20120118
  Transmission Date: 20120608
  Serious: Yes (Other)
  Sender: FDA-Public Use
  Company Number: PHHY2012AU004992

PATIENT
  Sex: Female

DRUGS (1)
  1. FEMARA [Suspect]
     Indication: BREAST CANCER
     Dates: start: 20091001

REACTIONS (3)
  - NEUROPATHY PERIPHERAL [None]
  - RASH GENERALISED [None]
  - VITAMIN D DECREASED [None]
